FAERS Safety Report 10258193 (Version 1)
Quarter: 2014Q2

REPORT INFORMATION
  Report Type: Spontaneous
  Country: US (occurrence: US)
  Receive Date: 20140625
  Receipt Date: 20140625
  Transmission Date: 20141212
  Serious: No
  Sender: FDA-Public Use
  Company Number: US-BAYER-2014-090429

PATIENT
  Age: 44 Year
  Sex: Female
  Weight: 73 kg

DRUGS (1)
  1. ALEVE TABLET [Suspect]
     Indication: EAR PAIN
     Dosage: 2 DF, UNK
     Route: 048
     Dates: start: 20140613

REACTIONS (3)
  - Abdominal pain upper [Recovered/Resolved]
  - Intentional product misuse [Unknown]
  - Inappropriate schedule of drug administration [None]
